FAERS Safety Report 5807547-1 (Version None)
Quarter: 2008Q3

REPORT INFORMATION
  Report Type: 
  Country: None (occurrence: None)
  Receive Date: 20080711
  Receipt Date: 20080702
  Transmission Date: 20090109
  Serious: Yes (Hospitalization)
  Sender: FDA-Public Use
  Company Number: PHHO2008DE08227

PATIENT
  Sex: Female
  Weight: 78 kg

DRUGS (5)
  1. ZOLEDRONIC ACID [Suspect]
     Indication: BREAST CANCER
     Dosage: 4 MG, UNK
     Route: 042
     Dates: start: 20080515
  2. VITAMIN D [Concomitant]
  3. CALCIUM [Concomitant]
  4. ATACAND [Concomitant]
     Indication: HYPERTENSION
     Dosage: 16 MG, UNK
     Route: 048
     Dates: start: 20020101
  5. EUTHYROX [Concomitant]
     Indication: THYROID DISORDER
     Dosage: 100 MG, UNK
     Route: 048
     Dates: start: 20020101

REACTIONS (2)
  - PAIN IN JAW [None]
  - TOOTHACHE [None]
